FAERS Safety Report 5374139-0 (Version None)
Quarter: 2007Q2

REPORT INFORMATION
  Report Type: 
  Country: None (occurrence: None)
  Receive Date: 20070627
  Receipt Date: 20070615
  Transmission Date: 20071010
  Serious: Yes (Other)
  Sender: FDA-Public Use
  Company Number: GXKR2007JP05175

PATIENT
  Age: 73 Year
  Sex: Female

DRUGS (4)
  1. RIFAMPICIN [Suspect]
     Dosage: 450 MG, QD
     Dates: start: 20050530
  2. ISONIAZID [Suspect]
     Dosage: 300 MG, QD
     Dates: start: 20070530
  3. PYRAZINAMIDE [Suspect]
     Dosage: 1.2 G, QD
     Dates: start: 20050530
  4. ETHAMBUTOL HYDROCHLORIDE [Suspect]
     Dosage: 750 MG, QD
     Dates: start: 20050530

REACTIONS (6)
  - CONDITION AGGRAVATED [None]
  - LUNG INFILTRATION [None]
  - LYMPHOCYTE PERCENTAGE DECREASED [None]
  - MYCOBACTERIUM ABSCESSUS INFECTION [None]
  - PARADOXICAL DRUG REACTION [None]
  - TUBERCULOSIS SKIN TEST POSITIVE [None]
